FAERS Safety Report 4584714-9 (Version None)
Quarter: 2005Q1

REPORT INFORMATION
  Report Type: 
  Country: None (occurrence: None)
  Receive Date: 20050211
  Receipt Date: 20050131
  Transmission Date: 20050727
  Serious: Yes (Other)
  Sender: FDA-Public Use
  Company Number: HQWYE130804FEB05

PATIENT
  Age: 57 Year
  Sex: Male

DRUGS (15)
  1. AMIODARONE HCL [Suspect]
     Indication: ATRIAL FIBRILLATION
     Dosage: SEE IMAGE
     Route: 042
  2. BISOPROLOL ^RATIOPHARM^ (BISOPROLOL) [Concomitant]
  3. ENALAPRIL MALEATE [Concomitant]
  4. ACETAMINOPHEN [Concomitant]
  5. CORDARONE [Concomitant]
  6. DIGOXIN [Concomitant]
  7. FUROSEMIDE [Concomitant]
  8. TORSEMIDE [Concomitant]
  9. TORSEMIDE [Concomitant]
  10. VENLAFAXINE (VENLAFAXINE HYDROCHLORIDE) [Concomitant]
  11. CAPTOPRIL [Concomitant]
  12. HEPARIN [Concomitant]
  13. ACETYLSALICYLIC ACID SRT [Concomitant]
  14. METOPROLOL TARTRATE [Concomitant]
  15. NITROGLYCERIN ^A.L.^ (GLYCERYL TRINITRATE) [Concomitant]

REACTIONS (3)
  - HEPATOCELLULAR DAMAGE [None]
  - HEPATOTOXICITY [None]
  - INTERNATIONAL NORMALISED RATIO INCREASED [None]
